APPROVED DRUG PRODUCT: STROMECTOL
Active Ingredient: IVERMECTIN
Strength: 6MG **Federal Register determination that product was not discontinued or withdrawn for safety or effectiveness reasons**
Dosage Form/Route: TABLET;ORAL
Application: N050742 | Product #001
Applicant: MERCK SHARP AND DOHME CORP
Approved: Nov 22, 1996 | RLD: Yes | RS: No | Type: DISCN